FAERS Safety Report 23435299 (Version 1)
Quarter: 2024Q1

REPORT INFORMATION
  Report Type: Spontaneous
  Country: JP (occurrence: JP)
  Receive Date: 20240123
  Receipt Date: 20240123
  Transmission Date: 20240410
  Serious: Yes (Other)
  Sender: FDA-Public Use
  Company Number: JP-JAZZ PHARMACEUTICALS-2024-JP-001168

PATIENT
  Age: 59 Year
  Sex: Male

DRUGS (8)
  1. DEFITELIO [Suspect]
     Active Substance: DEFIBROTIDE SODIUM
     Indication: Venoocclusive liver disease
     Dosage: 25 MILLIGRAM/KILOGRAM 1 25 MG/KG (6.25 MG/KG/6 HOURS)
     Route: 042
     Dates: start: 20231205
  2. CYTARABINE [Suspect]
     Active Substance: CYTARABINE
     Indication: Chloroma
     Dosage: UNK
     Route: 042
  3. VIDAZA [Suspect]
     Active Substance: AZACITIDINE
     Indication: Chloroma
     Dosage: UNK
     Route: 042
  4. VENETOCLAX [Concomitant]
     Active Substance: VENETOCLAX
     Indication: Chloroma
  5. FLUCONAZOLE [Concomitant]
     Active Substance: FLUCONAZOLE
     Indication: Product used for unknown indication
     Dosage: UNK
  6. URSODIOL [Concomitant]
     Active Substance: URSODIOL
     Indication: Product used for unknown indication
     Dosage: UNK
  7. HEPARIN [Concomitant]
     Active Substance: HEPARIN SODIUM
     Indication: Product used for unknown indication
     Dosage: UNK
  8. METHYLPREDNISOLONE [Concomitant]
     Active Substance: METHYLPREDNISOLONE
     Indication: Product used for unknown indication
     Dosage: 40 MILLIGRAM

REACTIONS (3)
  - Platelet count decreased [Unknown]
  - Blood bilirubin increased [Unknown]
  - Abdominal pain [Unknown]
